FAERS Safety Report 12726102 (Version 3)
Quarter: 2017Q1

REPORT INFORMATION
  Report Type: Spontaneous
  Country: IT (occurrence: IT)
  Receive Date: 20160908
  Receipt Date: 20170127
  Transmission Date: 20170428
  Serious: Yes (Hospitalization, Other)
  Sender: FDA-Public Use
  Company Number: IT-UCBSA-2016034352

PATIENT
  Age: 32 Year
  Sex: Male

DRUGS (9)
  1. KEPPRA [Suspect]
     Active Substance: LEVETIRACETAM
     Indication: PERSONALITY DISORDER
     Dosage: 500 MG, 2X/DAY (BID)
     Route: 048
  2. DEPAKIN CHRONO [Suspect]
     Active Substance: VALPROIC ACID
     Dosage: UNK
     Route: 048
     Dates: start: 20160721, end: 20160722
  3. KEPPRA [Suspect]
     Active Substance: LEVETIRACETAM
     Indication: OFF LABEL USE
     Dosage: 60 DF, TOTAL
     Route: 048
     Dates: start: 20160721, end: 20160722
  4. NOZINAN [Suspect]
     Active Substance: LEVOMEPROMAZINE
     Dosage: 1 DF, TOTAL
     Route: 048
     Dates: start: 20160721, end: 20160721
  5. QUETIAPINE. [Suspect]
     Active Substance: QUETIAPINE
     Dosage: 400 MG, TOTAL
     Dates: start: 20160721, end: 20160722
  6. DEPAKIN CHRONO [Suspect]
     Active Substance: VALPROIC ACID
     Indication: PRODUCT USED FOR UNKNOWN INDICATION
     Dosage: 300 MG, 2 TABLETS/DAY
     Route: 048
  7. ETILTOX [Concomitant]
     Active Substance: DISULFIRAM
     Indication: PRODUCT USED FOR UNKNOWN INDICATION
     Dosage: 200 MG, IN THE MORNING
     Route: 048
  8. QUETIAPINE. [Suspect]
     Active Substance: QUETIAPINE
     Indication: PRODUCT USED FOR UNKNOWN INDICATION
     Dosage: 200 MG, 3 TABLETS/DAY
  9. NOZINAN [Suspect]
     Active Substance: LEVOMEPROMAZINE
     Indication: PRODUCT USED FOR UNKNOWN INDICATION
     Dosage: 10 MG, 1 TABLET/DAY
     Route: 048

REACTIONS (3)
  - Drug abuse [Unknown]
  - Off label use [Unknown]
  - Bradyphrenia [Unknown]

NARRATIVE: CASE EVENT DATE: 20160722
